FAERS Safety Report 25516471 (Version 1)
Quarter: 2025Q3

REPORT INFORMATION
  Report Type: Spontaneous
  Country: US (occurrence: US)
  Receive Date: 20250704
  Receipt Date: 20250704
  Transmission Date: 20251020
  Serious: No
  Sender: RADIUS PHARM
  Company Number: US-RADIUS HEALTH INC.-2025US002202

PATIENT
  Sex: Female

DRUGS (1)
  1. TYMLOS [Suspect]
     Active Substance: ABALOPARATIDE
     Indication: Osteoporosis
     Dosage: 80 MICROGRAM, QD
     Route: 058

REACTIONS (8)
  - Unevaluable event [Unknown]
  - Cardiac disorder [Unknown]
  - Cough [Unknown]
  - Heart rate increased [Unknown]
  - Palpitations [Unknown]
  - Blood pressure decreased [Unknown]
  - Headache [Unknown]
  - Dizziness [Unknown]
